FAERS Safety Report 21853027 (Version 6)
Quarter: 2023Q2

REPORT INFORMATION
  Report Type: Spontaneous
  Country: DE (occurrence: DE)
  Receive Date: 20230112
  Receipt Date: 20230417
  Transmission Date: 20230721
  Serious: Yes (Hospitalization, Other)
  Sender: FDA-Public Use
  Company Number: DE-002147023-NVSC2022DE024466

PATIENT

DRUGS (87)
  1. DICLOFENAC DIETHYLAMINE [Suspect]
     Active Substance: DICLOFENAC DIETHYLAMINE
     Indication: Oedema peripheral
     Dosage: 120 G
     Route: 065
     Dates: start: 2018
  2. VALSARTAN [Suspect]
     Active Substance: VALSARTAN
     Indication: Hypertension
     Dosage: 160 MG, BID (ONCE IN THE MORNING AT ABOUT 8 AM AND ONCE IN THE EVENING AT ABOUT 8 PM)
     Route: 065
  3. DICLOFENAC [Suspect]
     Active Substance: DICLOFENAC
     Indication: Product used for unknown indication
     Dosage: UNK
     Route: 065
  4. VALSARTAN [Suspect]
     Active Substance: VALSARTAN
     Indication: Hypertension
     Dosage: 160 MG
     Route: 065
     Dates: end: 2018
  5. VALSARTAN [Suspect]
     Active Substance: VALSARTAN
     Indication: Hypertension
  6. VALSARTAN [Suspect]
     Active Substance: VALSARTAN
     Indication: Hypertension
     Dosage: 160 MG, QD
     Route: 065
     Dates: start: 2012
  7. ATORVASTATIN CALCIUM\EZETIMIBE [Suspect]
     Active Substance: ATORVASTATIN CALCIUM\EZETIMIBE
     Indication: Hyperlipidaemia
     Dosage: 1 DF, QD
     Route: 065
     Dates: start: 2017, end: 2018
  8. AMLODIPINE [Suspect]
     Active Substance: AMLODIPINE BESYLATE
     Indication: Product used for unknown indication
     Dosage: 10 MG
     Route: 065
  9. METOPROLOL [Suspect]
     Active Substance: METOPROLOL
     Indication: Product used for unknown indication
     Dosage: 47.5 MG, QD (DAILY MORNING)
     Route: 065
  10. METOPROLOL [Suspect]
     Active Substance: METOPROLOL
     Dosage: 47.5 MG, QD (HALF TABLET) (DAILY EVENING)
     Route: 065
  11. METOPROLOL [Suspect]
     Active Substance: METOPROLOL
     Dosage: 47.5 MG QD (DAILY MORNING))
     Route: 065
  12. METOPROLOL [Suspect]
     Active Substance: METOPROLOL
     Dosage: 47.5 MG (HALF TABLET) (DAILY EVENING)
     Route: 065
  13. CANDESARTAN CILEXETIL [Concomitant]
     Active Substance: CANDESARTAN CILEXETIL
     Indication: Hypertension
     Dosage: 60 MG
     Route: 065
     Dates: start: 2018
  14. CANDESARTAN [Concomitant]
     Active Substance: CANDESARTAN
     Indication: Product used for unknown indication
     Dosage: 32 MG, QD (ONCE IN THE MORNING (1-0-0)
     Route: 065
  15. CANDESARTAN [Concomitant]
     Active Substance: CANDESARTAN
     Dosage: 32 MG, QD (ONCE IN THE MORNING (1-0-0)
     Route: 065
  16. CANDESARTAN [Concomitant]
     Active Substance: CANDESARTAN
     Dosage: 32 MG, QD (ONCE IN THE MORNING (1-0-0)
     Route: 065
  17. CANDESARTAN ABZ [Concomitant]
     Indication: Hypertension
     Dosage: UNK, QD (ONCE IN THE MORNING)
     Route: 065
     Dates: start: 2018
  18. INDAPAMIDE [Concomitant]
     Active Substance: INDAPAMIDE
     Indication: Product used for unknown indication
     Dosage: 2.5 MG, QD (ONCE IN THE MORNING (1-0-0)
     Route: 065
     Dates: start: 201910
  19. INDAPAMIDE [Concomitant]
     Active Substance: INDAPAMIDE
     Indication: Product used for unknown indication
     Dosage: 1 DF, QD
     Route: 065
     Dates: start: 2019
  20. LERCANIDIPINE [Concomitant]
     Active Substance: LERCANIDIPINE
     Indication: Product used for unknown indication
     Dosage: 40 MG, QD (ON IN THE MORNING (1-0- 0))
     Route: 065
  21. LERCANIDIPINE [Concomitant]
     Active Substance: LERCANIDIPINE
     Dosage: 10 MG, QD
     Route: 065
  22. LERCANIDIPINE [Concomitant]
     Active Substance: LERCANIDIPINE
     Dosage: 10 MG, QD (IN THE  MORNING)
     Route: 065
     Dates: start: 2019
  23. LERCANIDIPINE [Concomitant]
     Active Substance: LERCANIDIPINE
     Dosage: 10 MG, BID (TWICE IN THE MORNING)
     Route: 065
  24. LERCANIDIPINE [Concomitant]
     Active Substance: LERCANIDIPINE
     Dosage: 10 MG, BID (ONCE IN THE MORNING AND ONCE IN THE NOON)
     Route: 065
     Dates: start: 201910
  25. LERCANIDIPINE [Concomitant]
     Active Substance: LERCANIDIPINE
     Dosage: 10 MG, QD (ONCE IN THE MORNING (1-0-0))
     Route: 065
  26. PANTOPRAZOLE SODIUM [Concomitant]
     Active Substance: PANTOPRAZOLE SODIUM
     Indication: Product used for unknown indication
     Dosage: 20 MG, QD (ONCE IN THE EVENING)
     Route: 065
  27. PANTOPRAZOLE SODIUM [Concomitant]
     Active Substance: PANTOPRAZOLE SODIUM
     Dosage: 20 MG, QD (ONCE IN THE MORNING (1-0- 0))
     Route: 065
  28. PANTOPRAZOLE SODIUM [Concomitant]
     Active Substance: PANTOPRAZOLE SODIUM
     Indication: Product used for unknown indication
     Dosage: 20 MG
     Route: 065
  29. PANTOPRAZOLE SODIUM [Concomitant]
     Active Substance: PANTOPRAZOLE SODIUM
     Dosage: 20 MG
     Route: 065
  30. PANTOPRAZOLE [Concomitant]
     Active Substance: PANTOPRAZOLE
     Indication: Product used for unknown indication
     Dosage: 40 MG, BID, (ONCE IN THE MORNING, ONCE IN THE EVENING (1-0-1)
     Route: 065
  31. PANTOPRAZOLE [Concomitant]
     Active Substance: PANTOPRAZOLE
     Dosage: 40 MG, QD (ONCE IN THE MORNING (1-0-0)
     Route: 065
  32. PANTOPRAZOLE [Concomitant]
     Active Substance: PANTOPRAZOLE
     Dosage: 40 MG, BID, (ONCE IN THE MORNING, ONCE IN THE EVENING (1-0-1)
     Route: 065
  33. PANTOPRAZOLE [Concomitant]
     Active Substance: PANTOPRAZOLE
     Dosage: 40 MG, QD (ONCE IN THE MORNING (1-0- 0))
     Route: 065
  34. AMLODIPINE BESYLATE [Concomitant]
     Active Substance: AMLODIPINE BESYLATE
     Indication: Product used for unknown indication
     Dosage: 5 MG
     Route: 065
     Dates: end: 2019
  35. AMLODIPIN HEXAL [Concomitant]
     Indication: Product used for unknown indication
     Dosage: 5 MG
     Route: 065
  36. AMLODIPIN HEXAL [Concomitant]
     Dosage: 5 MG
     Route: 065
  37. TORSEMIDE [Concomitant]
     Active Substance: TORSEMIDE
     Indication: Product used for unknown indication
     Dosage: 5 MG, QD (5 MG DAILY MORNING)
     Route: 065
  38. TORSEMIDE [Concomitant]
     Active Substance: TORSEMIDE
     Dosage: 5 MG, QD (5 MG DAILY MORNING)
     Route: 065
  39. AMLODIPINE [Concomitant]
     Active Substance: AMLODIPINE BESYLATE
     Indication: Product used for unknown indication
     Dosage: 5 MG, QD,( DAILY EVENING)
     Route: 065
  40. AMLODIPINE [Concomitant]
     Active Substance: AMLODIPINE BESYLATE
     Dosage: 5 MG, QD, DAILY EVENING
     Route: 065
  41. AMLODIPINE [Concomitant]
     Active Substance: AMLODIPINE BESYLATE
     Dosage: 5 MG, QD,( DAILY EVENING)
     Route: 065
  42. AMLODIPINE [Concomitant]
     Active Substance: AMLODIPINE BESYLATE
     Dosage: 5 MG, QD (1 DAILY MORNING)
     Route: 065
  43. ATORVASTATIN CALCIUM [Concomitant]
     Active Substance: ATORVASTATIN CALCIUM
     Indication: Hypercholesterolaemia
     Dosage: 20 MG (DAILY MORNING)
     Route: 065
     Dates: start: 2016
  44. ATORVASTATIN CALCIUM [Concomitant]
     Active Substance: ATORVASTATIN CALCIUM
     Dosage: 40 MG
     Route: 065
     Dates: start: 202009
  45. ATORVASTATIN CALCIUM [Concomitant]
     Active Substance: ATORVASTATIN CALCIUM
     Dosage: UNK (ONE IN THE EVENIN G (0-0-1)
     Route: 065
  46. BEZAFIBRATE DISPERSIBLE TABLETS [Concomitant]
     Indication: Product used for unknown indication
     Dosage: 400 MG, QD
     Route: 065
     Dates: start: 2018
  47. RAMIPRIL [Concomitant]
     Active Substance: RAMIPRIL
     Indication: Hypertension
     Dosage: UNK
     Route: 065
     Dates: start: 2018, end: 2018
  48. CANDESARTAN CILEXETIL\HYDROCHLOROTHIAZIDE [Concomitant]
     Active Substance: CANDESARTAN CILEXETIL\HYDROCHLOROTHIAZIDE
     Indication: Product used for unknown indication
     Dosage: UNK, QD
     Route: 065
  49. METOPROLOLSUCCINAT 1 A PHARMA RETARD [Concomitant]
     Indication: Product used for unknown indication
     Dosage: UNK
     Route: 065
  50. HYDROCHLOROTHIAZIDE [Concomitant]
     Active Substance: HYDROCHLOROTHIAZIDE
     Indication: Product used for unknown indication
     Dosage: 12.5 MG, QD (ONCE IN THE MORNING (1-0-0))
     Route: 065
  51. CANDESARPLUS AL [Concomitant]
     Indication: Product used for unknown indication
     Dosage: 1 DOSAGE FORM, QD (ONE IN THE MORNING)
     Route: 065
  52. UNACID [Concomitant]
     Indication: Product used for unknown indication
     Dosage: 3 G
     Route: 042
  53. VALIUM [Concomitant]
     Active Substance: DIAZEPAM
     Indication: Catheterisation cardiac
     Dosage: 2.50 MG
     Route: 042
  54. NITROGLYCERIN [Concomitant]
     Active Substance: NITROGLYCERIN
     Indication: Catheterisation cardiac
     Dosage: 0.2 MG
     Route: 013
  55. BETABLOCKADE [Concomitant]
     Indication: Hypertension
     Dosage: UNK (INCREASED IN THE MORNING)
     Route: 065
     Dates: start: 201511
  56. BETABLOCKADE [Concomitant]
     Dosage: UNK (INCREASED IN THE MORNING)
     Route: 065
     Dates: start: 2015
  57. PROPRANOLOL HYDROCHLORIDE [Concomitant]
     Active Substance: PROPRANOLOL HYDROCHLORIDE
     Indication: Hypertension
     Dosage: UNK (INCREASED IN THE MORNING)
     Route: 065
     Dates: start: 201511
  58. ATORVASTATIN [Concomitant]
     Active Substance: ATORVASTATIN
     Indication: Product used for unknown indication
     Dosage: 20 MG (DAILY MORNING)
     Route: 065
     Dates: start: 2016
  59. ATORVASTATIN [Concomitant]
     Active Substance: ATORVASTATIN
     Dosage: 40 MG
     Route: 065
     Dates: start: 202009
  60. SCOPOLAMINE [Concomitant]
     Active Substance: SCOPOLAMINE
     Indication: Oesophagogastroduodenoscopy
     Dosage: 20 MG
     Route: 042
     Dates: start: 20190909, end: 20190909
  61. IOMEPROL [Concomitant]
     Active Substance: IOMEPROL
     Indication: Catheterisation cardiac
     Dosage: 90 ML
     Route: 013
  62. BEZAFIBRATE [Concomitant]
     Active Substance: BEZAFIBRATE
     Indication: Product used for unknown indication
     Dosage: 400 MG, QD
     Route: 065
     Dates: start: 2018
  63. METOPROLOLSUCCINAT- 1 A PHARMA [Concomitant]
     Indication: Product used for unknown indication
     Dosage: UNK
     Route: 065
  64. METOPROLOL SUCCINATE [Concomitant]
     Active Substance: METOPROLOL SUCCINATE
     Indication: Product used for unknown indication
     Dosage: 47.5 MG, QD (1X DAILY MORNING)
     Route: 065
  65. METOPROLOL SUCCINATE [Concomitant]
     Active Substance: METOPROLOL SUCCINATE
     Dosage: 47.5 MG, QD (ONE IN  THE  MORNIN G AND A  HALF IN  THE  EVENIN G (1-0- 1/2)
     Route: 065
  66. ATORVASTATIN [Concomitant]
     Active Substance: ATORVASTATIN
     Indication: Hypercholesterolaemia
     Dosage: 20 MG, QD (ONCE DAILY IN THE EVENING (0-0-1)
     Route: 065
  67. ATORVASTATIN [Concomitant]
     Active Substance: ATORVASTATIN
     Dosage: 20 MG, QD (ONCE DAILY IN THE EVENING (0-0-1)
     Route: 065
  68. PANTOPRAZOLE SODIUM [Concomitant]
     Active Substance: PANTOPRAZOLE SODIUM
     Indication: Product used for unknown indication
     Dosage: UNK UNK, QD (ONCE IN THE EVENING)
     Route: 065
  69. ATORVASTATIN CALCIUM [Concomitant]
     Active Substance: ATORVASTATIN CALCIUM
     Indication: Product used for unknown indication
     Dosage: 20 MG, QD (DAILY MORNING)
     Route: 065
     Dates: start: 2016
  70. ATORVASTATIN CALCIUM [Concomitant]
     Active Substance: ATORVASTATIN CALCIUM
     Dosage: 40 MG
     Route: 065
     Dates: start: 202009
  71. CANDESARTAN CILEXETIL [Concomitant]
     Active Substance: CANDESARTAN CILEXETIL
     Indication: Hypertension
     Dosage: 6 MG
     Route: 065
     Dates: start: 2018
  72. AMLODIPINE BESYLATE [Concomitant]
     Active Substance: AMLODIPINE BESYLATE
     Indication: Product used for unknown indication
     Dosage: 5 MG
     Route: 065
     Dates: end: 2019
  73. HYDROCHLOROTHIAZIDE\VALSARTAN [Concomitant]
     Active Substance: HYDROCHLOROTHIAZIDE\VALSARTAN
     Indication: Product used for unknown indication
     Dosage: 16012.5 MG, QD (DAILY AT MORNING)
     Route: 065
  74. METOPROLOL SUCCINATE [Concomitant]
     Active Substance: METOPROLOL SUCCINATE
     Indication: Product used for unknown indication
     Dosage: UNK
     Route: 065
  75. PROPOFOL [Concomitant]
     Active Substance: PROPOFOL
     Indication: Oesophagogastroduodenoscopy
     Dosage: 100 MG
     Route: 065
     Dates: start: 20190910, end: 20190910
  76. PROPOFOL [Concomitant]
     Active Substance: PROPOFOL
     Dosage: UNK (150)
     Route: 042
     Dates: start: 20201013, end: 20201013
  77. PROPOFOL [Concomitant]
     Active Substance: PROPOFOL
     Dosage: 70 MG
     Route: 042
     Dates: start: 20190821, end: 20190821
  78. PROPOFOL [Concomitant]
     Active Substance: PROPOFOL
     Dosage: 300 MG
     Route: 042
     Dates: start: 20190909, end: 20190909
  79. PROPOFOL [Concomitant]
     Active Substance: PROPOFOL
     Dosage: 100 MG
     Route: 042
     Dates: start: 20191204, end: 20191204
  80. PROPOFOL [Concomitant]
     Active Substance: PROPOFOL
     Dosage: 130 MG
     Route: 042
     Dates: start: 20221209, end: 20221209
  81. OXYGEN [Concomitant]
     Active Substance: OXYGEN
     Indication: Oesophagogastroduodenoscopy
     Dosage: 2 L
     Route: 065
     Dates: start: 20190821
  82. OXYGEN [Concomitant]
     Active Substance: OXYGEN
     Dosage: 2 L
     Route: 065
     Dates: start: 20201013
  83. OXYGEN [Concomitant]
     Active Substance: OXYGEN
     Dosage: 2 L
     Route: 065
     Dates: start: 20190910
  84. OXYGEN [Concomitant]
     Active Substance: OXYGEN
     Dosage: 2 L
     Route: 065
     Dates: start: 20190909
  85. OXYGEN [Concomitant]
     Active Substance: OXYGEN
     Dosage: 2 L
     Route: 065
     Dates: start: 20191204
  86. OXYGEN [Concomitant]
     Active Substance: OXYGEN
     Dosage: 2 L
     Route: 065
     Dates: start: 20221209, end: 20221209
  87. ATORVASTATIN [Concomitant]
     Active Substance: ATORVASTATIN
     Indication: Hypercholesterolaemia
     Dosage: UNK UNK, QD
     Route: 065

REACTIONS (75)
  - Arteriosclerosis coronary artery [Unknown]
  - Fungal oesophagitis [Unknown]
  - Diabetes mellitus [Unknown]
  - Gastrointestinal stromal tumour [Recovering/Resolving]
  - Hypertensive crisis [Unknown]
  - Bradycardia [Unknown]
  - Renal artery stenosis [Unknown]
  - Tricuspid valve incompetence [Unknown]
  - Scar [Unknown]
  - Ill-defined disorder [Unknown]
  - Cough [Recovering/Resolving]
  - Acne [Unknown]
  - Asthma [Unknown]
  - Arteriosclerosis [Unknown]
  - Arthralgia [Unknown]
  - Abdominal distension [Unknown]
  - Anxiety [Unknown]
  - Back pain [Unknown]
  - Blood calcium decreased [Unknown]
  - Chest pain [Unknown]
  - Chest discomfort [Unknown]
  - Chronic gastritis [Unknown]
  - Cholelithiasis [Unknown]
  - Cystitis [Unknown]
  - Diastolic dysfunction [Unknown]
  - Dizziness [Unknown]
  - Drug hypersensitivity [Unknown]
  - Dyspnoea [Unknown]
  - Dyspepsia [Unknown]
  - Dysuria [Unknown]
  - Dysphagia [Unknown]
  - Epicondylitis [Unknown]
  - Eczema [Unknown]
  - Gastrooesophageal reflux disease [Recovering/Resolving]
  - Haemorrhoids [Unknown]
  - Hiatus hernia [Unknown]
  - High density lipoprotein decreased [Unknown]
  - Hypercholesterolaemia [Unknown]
  - Hyperhomocysteinaemia [Unknown]
  - Hyperlipidaemia [Not Recovered/Not Resolved]
  - Headache [Unknown]
  - Influenza [Recovered/Resolved]
  - Insomnia [Unknown]
  - Limb discomfort [Unknown]
  - Ligament rupture [Unknown]
  - Malaise [Unknown]
  - Muscle spasticity [Unknown]
  - Nasopharyngitis [Recovering/Resolving]
  - Nausea [Unknown]
  - Obstructive sleep apnoea syndrome [Unknown]
  - Oedema peripheral [Unknown]
  - Oropharyngeal pain [Unknown]
  - Osteoarthritis [Unknown]
  - Pain [Unknown]
  - Pain in extremity [Unknown]
  - Pain in extremity [Unknown]
  - Paraesthesia [Unknown]
  - Peripheral swelling [Unknown]
  - Polyp [Unknown]
  - Pyrexia [Recovering/Resolving]
  - Rash [Unknown]
  - Scoliosis [Unknown]
  - Snoring [Unknown]
  - Spinal osteoarthritis [Unknown]
  - Stress [Unknown]
  - Supraventricular extrasystoles [Unknown]
  - Throat irritation [Unknown]
  - Trigger finger [Unknown]
  - Tenosynovitis [Unknown]
  - Torticollis [Unknown]
  - Urinary incontinence [Unknown]
  - Urine odour abnormal [Unknown]
  - Urinary tract infection [Unknown]
  - Wheezing [Unknown]
  - White blood cells urine positive [Unknown]

NARRATIVE: CASE EVENT DATE: 20130801
